FAERS Safety Report 13762679 (Version 4)
Quarter: 2017Q3

REPORT INFORMATION
  Report Type: Spontaneous
  Country: GB (occurrence: GB)
  Receive Date: 20170718
  Receipt Date: 20170728
  Transmission Date: 20171127
  Serious: Yes (Other)
  Sender: FDA-Public Use
  Company Number: PHFR2017GB005561

PATIENT
  Sex: Female

DRUGS (3)
  1. CICLOSPORIN [Suspect]
     Active Substance: CYCLOSPORINE
     Indication: PSORIASIS
     Dosage: 150 MG, BID
     Route: 065
     Dates: start: 20100917
  2. CICLOSPORIN [Suspect]
     Active Substance: CYCLOSPORINE
     Dosage: 150 MG, QD
     Route: 065
     Dates: start: 20151104, end: 20160309
  3. CICLOSPORIN [Suspect]
     Active Substance: CYCLOSPORINE
     Dosage: UNK
     Route: 065
     Dates: start: 20160309

REACTIONS (3)
  - Maternal exposure during pregnancy [Unknown]
  - Abortion spontaneous [Unknown]
  - Vomiting in pregnancy [Unknown]
